FAERS Safety Report 4719625-9 (Version None)
Quarter: 2005Q3

REPORT INFORMATION
  Report Type: 
  Country: None (occurrence: None)
  Receive Date: 20050721
  Receipt Date: 20040413
  Transmission Date: 20060218
  Serious: No
  Sender: FDA-Public Use
  Company Number: US-GLAXOSMITHKLINE-A0508241A

PATIENT
  Age: 52 Year
  Sex: Female
  Weight: 101.8 kg

DRUGS (12)
  1. AVANDIA [Suspect]
     Dosage: 8MG PER DAY
     Route: 048
  2. NPH INSULIN [Concomitant]
     Dosage: 25UNIT IN THE MORNING
     Route: 042
  3. NPH INSULIN [Concomitant]
     Dosage: 35U SINGLE DOSE
     Route: 042
  4. GLUCOPHAGE [Concomitant]
     Dosage: 850MG THREE TIMES PER DAY
     Route: 048
  5. GLIPIZIDE [Concomitant]
     Dosage: 10MG TWICE PER DAY
     Route: 048
  6. LISINOPRIL [Concomitant]
     Indication: DRUG USE FOR UNKNOWN INDICATION
     Dosage: 40MG AT NIGHT
     Route: 048
  7. HYDROCHLOROTHIAZIDE [Concomitant]
     Indication: DRUG USE FOR UNKNOWN INDICATION
     Dosage: 25MG PER DAY
     Route: 048
  8. ZOCOR [Concomitant]
     Dosage: 40MG AT NIGHT
     Route: 048
     Dates: end: 20011128
  9. CELEBREX [Concomitant]
     Indication: DRUG USE FOR UNKNOWN INDICATION
     Dosage: 200MG TWICE PER DAY
     Route: 048
  10. NEURONTIN [Concomitant]
     Indication: DRUG USE FOR UNKNOWN INDICATION
     Dosage: 600MG THREE TIMES PER DAY
     Route: 048
  11. PROZAC [Concomitant]
     Indication: DRUG USE FOR UNKNOWN INDICATION
     Dosage: 20MG PER DAY
     Route: 048
  12. COUMADIN [Concomitant]
     Indication: DRUG USE FOR UNKNOWN INDICATION
     Route: 048

REACTIONS (1)
  - FLUID RETENTION [None]
